FAERS Safety Report 6024394-9 (Version None)
Quarter: 2008Q4

REPORT INFORMATION
  Report Type: 
  Country: None (occurrence: None)
  Receive Date: 20081231
  Receipt Date: 20081229
  Transmission Date: 20090506
  Serious: Yes (Hospitalization, Other)
  Sender: FDA-Public Use
  Company Number: PR-BAYER-PR-2007-027706

PATIENT
  Age: 23 Year
  Sex: Female
  Weight: 63 kg

DRUGS (3)
  1. YASMIN [Suspect]
     Indication: MENSTRUATION IRREGULAR
     Route: 048
     Dates: start: 20020101, end: 20051001
  2. YASMIN [Suspect]
     Route: 048
     Dates: start: 20060101, end: 20060301
  3. ATARAX [Concomitant]
     Indication: RASH

REACTIONS (13)
  - COLLAGEN DISORDER [None]
  - DEEP VEIN THROMBOSIS [None]
  - DIZZINESS [None]
  - DRUG INTOLERANCE [None]
  - GROIN PAIN [None]
  - HEADACHE [None]
  - MALAISE [None]
  - MENSTRUATION IRREGULAR [None]
  - NAUSEA [None]
  - OEDEMA PERIPHERAL [None]
  - PAIN IN EXTREMITY [None]
  - THROMBOPHLEBITIS SUPERFICIAL [None]
  - VIRAL INFECTION [None]
